FAERS Safety Report 16641355 (Version 4)
Quarter: 2022Q3

REPORT INFORMATION
  Report Type: Report from Study
  Country: CA (occurrence: CA)
  Receive Date: 20190729
  Receipt Date: 20220707
  Transmission Date: 20221027
  Serious: Yes (Hospitalization, Other)
  Sender: FDA-Public Use
  Company Number: CA-GLAXOSMITHKLINE-CA2019AMR134475

PATIENT

DRUGS (14)
  1. MEPOLIZUMAB [Suspect]
     Active Substance: MEPOLIZUMAB
     Indication: Asthma
     Dosage: 100 MG, Z (1 MONTHS)
     Route: 042
     Dates: start: 20170818
  2. VENTOLIN [Suspect]
     Active Substance: ALBUTEROL SULFATE
     Indication: Asthma
     Dosage: UNK, PRN
  3. VENTOLIN [Suspect]
     Active Substance: ALBUTEROL SULFATE
     Dosage: UNK, QD
     Route: 048
  4. SERTRALINE [Suspect]
     Active Substance: SERTRALINE HYDROCHLORIDE
     Indication: Asthma
     Dosage: UNK
  5. ALBUTEROL [Suspect]
     Active Substance: ALBUTEROL
     Indication: Product used for unknown indication
     Dosage: UNK, 2-4 PUFFS, PRN
  6. SPIRIVA [Suspect]
     Active Substance: TIOTROPIUM BROMIDE MONOHYDRATE
     Indication: Asthma
     Dosage: 2 PUFF(S), QD, 2.5 MCG
     Route: 055
  7. SYMBICORT [Suspect]
     Active Substance: BUDESONIDE\FORMOTEROL FUMARATE DIHYDRATE
     Indication: Asthma
     Dosage: 2 PUFF(S), BID 200/6 MCG
  8. SYMBICORT [Suspect]
     Active Substance: BUDESONIDE\FORMOTEROL FUMARATE DIHYDRATE
     Dosage: 2 PUFF(S), QID 200/6 MCG
  9. SYMBICORT [Suspect]
     Active Substance: BUDESONIDE\FORMOTEROL FUMARATE DIHYDRATE
     Indication: Asthma
     Dosage: 2 PUFF(S), BID (2 ADDITIONAL INHLATAIONS AS NEEDED TO QID)
     Route: 055
  10. ADVAIR HFA [Concomitant]
     Active Substance: FLUTICASONE PROPIONATE\SALMETEROL XINAFOATE
     Indication: Asthma
     Dosage: UNK
  11. ZOPICLONE [Concomitant]
     Active Substance: ZOPICLONE
     Indication: Asthma
     Dosage: UNK
  12. PREDNISONE [Concomitant]
     Active Substance: PREDNISONE
     Indication: Asthma
     Dosage: UNK
     Route: 048
  13. PREDNISONE [Concomitant]
     Active Substance: PREDNISONE
     Dosage: 50 MG, QD
  14. PREDNISONE [Concomitant]
     Active Substance: PREDNISONE
     Dosage: 40 MG, UNK (FOR 5 DAYS)

REACTIONS (106)
  - Asthma [Recovering/Resolving]
  - Dyspnoea [Recovering/Resolving]
  - Wheezing [Recovering/Resolving]
  - Arthritis infective [Unknown]
  - Adrenal insufficiency [Unknown]
  - Syncope [Unknown]
  - Pericarditis [Unknown]
  - Suicidal ideation [Unknown]
  - Addison^s disease [Unknown]
  - Myelopathy [Unknown]
  - Defect conduction intraventricular [Unknown]
  - Deafness [Unknown]
  - Haemorrhage [Unknown]
  - Pneumonia [Unknown]
  - Cough [Unknown]
  - Bronchopulmonary dysplasia [Unknown]
  - Hypoventilation [Unknown]
  - Hypoxia [Unknown]
  - Pain of skin [Unknown]
  - Strabismus [Unknown]
  - Tremor [Unknown]
  - Blood test abnormal [Unknown]
  - Malaise [Unknown]
  - Skin mass [Unknown]
  - Dermal cyst [Unknown]
  - Joint effusion [Unknown]
  - Arthralgia [Unknown]
  - Pharyngeal erythema [Unknown]
  - Nasal mucosal discolouration [Unknown]
  - Nasal congestion [Unknown]
  - Meniscus injury [Unknown]
  - Ear disorder [Unknown]
  - Fatigue [Unknown]
  - Pyrexia [Unknown]
  - Productive cough [Unknown]
  - Pain [Unknown]
  - Headache [Unknown]
  - Vomiting [Unknown]
  - Influenza [Unknown]
  - Nasopharyngitis [Unknown]
  - Oxygen saturation decreased [Unknown]
  - Arthralgia [Unknown]
  - Motor dysfunction [Unknown]
  - Cardiac disorder [Unknown]
  - Right atrial enlargement [Unknown]
  - Sinus tachycardia [Unknown]
  - Tachypnoea [Unknown]
  - Blood immunoglobulin E increased [Unknown]
  - Somnolence [Unknown]
  - Intervertebral disc degeneration [Unknown]
  - Intervertebral disc protrusion [Unknown]
  - Hepatosplenomegaly [Unknown]
  - Chest discomfort [Unknown]
  - Obstructive airways disorder [Unknown]
  - Mass [Unknown]
  - Paraesthesia [Unknown]
  - Hypertension [Unknown]
  - Depressed mood [Unknown]
  - Anger [Unknown]
  - Pruritus [Unknown]
  - Haemoglobin increased [Unknown]
  - Abdominal tenderness [Unknown]
  - Tracheal disorder [Unknown]
  - Bacterial infection [Unknown]
  - Abdominal discomfort [Unknown]
  - Weight decreased [Recovering/Resolving]
  - Infection [Unknown]
  - Carpal tunnel syndrome [Unknown]
  - Pulmonary function test abnormal [Unknown]
  - Respiration abnormal [Unknown]
  - Groin pain [Unknown]
  - Depression [Unknown]
  - Viral disease carrier [Unknown]
  - Anxiety [Unknown]
  - Diarrhoea [Unknown]
  - Abdominal distension [Unknown]
  - Excessive masturbation [Unknown]
  - Palpitations [Unknown]
  - Kyphosis [Unknown]
  - Lung hyperinflation [Unknown]
  - Bronchial wall thickening [Unknown]
  - Peripheral swelling [Unknown]
  - Restrictive pulmonary disease [Unknown]
  - Bundle branch block right [Unknown]
  - Communication disorder [Unknown]
  - Decreased appetite [Unknown]
  - Bronchitis [Unknown]
  - Impaired work ability [Unknown]
  - Dry skin [Unknown]
  - Burning sensation [Unknown]
  - Dermatitis [Unknown]
  - Upper-airway cough syndrome [Unknown]
  - Retching [Unknown]
  - Nasopharyngitis [Unknown]
  - Dyspnoea exertional [Unknown]
  - Hypoaesthesia [Unknown]
  - Cognitive disorder [Unknown]
  - Asthenia [Unknown]
  - Paraesthesia [Unknown]
  - Blood immunoglobulin E decreased [Unknown]
  - Sleep disorder [Unknown]
  - Scar [Unknown]
  - Ligament injury [Unknown]
  - Loss of personal independence in daily activities [Recovered/Resolved]
  - Sleep disorder due to a general medical condition [Recovering/Resolving]
  - Therapeutic product effect incomplete [Unknown]
